FAERS Safety Report 6143743-4 (Version None)
Quarter: 2009Q2

REPORT INFORMATION
  Report Type: 
  Country: None (occurrence: None)
  Receive Date: 20090403
  Receipt Date: 20090324
  Transmission Date: 20091009
  Serious: Yes (Hospitalization, Other)
  Sender: FDA-Public Use
  Company Number: US-ABBOTT-09P-163-0564662-00

PATIENT
  Sex: Female
  Weight: 61.29 kg

DRUGS (9)
  1. ZEMPLAR [Suspect]
     Indication: HYPERPARATHYROIDISM
     Route: 048
     Dates: start: 20080101
  2. VESICARE [Concomitant]
     Indication: URINARY INCONTINENCE
  3. BENICAR [Concomitant]
     Indication: HYPERTENSION
  4. CITALOPRAM [Concomitant]
     Indication: DEPRESSION
  5. TYLENOL [Concomitant]
     Indication: ARTHRITIS
     Route: 048
  6. LEVOTHYROXINE SODIUM [Concomitant]
     Indication: HYPOTHYROIDISM
  7. AMBIEN [Concomitant]
     Indication: SLEEP DISORDER THERAPY
  8. PROCRIT [Concomitant]
     Indication: MYELODYSPLASTIC SYNDROME
  9. VITA D [Concomitant]
     Indication: VITAMIN SUPPLEMENTATION

REACTIONS (8)
  - BACK PAIN [None]
  - COUGH [None]
  - DIARRHOEA [None]
  - FLUID OVERLOAD [None]
  - NAUSEA [None]
  - PULMONARY OEDEMA [None]
  - PYREXIA [None]
  - VOMITING [None]
